FAERS Safety Report 5914136-7 (Version None)
Quarter: 2008Q3

REPORT INFORMATION
  Report Type: 
  Country: None (occurrence: None)
  Receive Date: 20080909
  Receipt Date: 20080115
  Transmission Date: 20090109
  Serious: Yes (Life-Threatening)
  Sender: FDA-Public Use
  Company Number: 163-20785-07091497

PATIENT
  Age: 53 Year
  Sex: Male

DRUGS (1)
  1. THALOMID [Suspect]
     Indication: MULTIPLE MYELOMA
     Dosage: 100 MG, DAILY, ORAL
     Route: 047
     Dates: start: 20070601

REACTIONS (4)
  - DYSPNOEA [None]
  - ERYTHEMA [None]
  - LIP SWELLING [None]
  - SWOLLEN TONGUE [None]
